FAERS Safety Report 12632267 (Version 3)
Quarter: 2016Q3

REPORT INFORMATION
  Report Type: Spontaneous
  Country: US (occurrence: US)
  Receive Date: 20160808
  Receipt Date: 20160826
  Transmission Date: 20161109
  Serious: No
  Sender: FDA-Public Use
  Company Number: US-BEH-2016062278

PATIENT
  Sex: Female
  Weight: 33.57 kg

DRUGS (5)
  1. HIZENTRA [Suspect]
     Active Substance: HUMAN IMMUNOGLOBULIN G
     Indication: HYPOGAMMAGLOBULINAEMIA
     Dosage: UNK
     Route: 065
     Dates: start: 201503
  2. AZELASTINE [Concomitant]
     Active Substance: AZELASTINE
  3. HIZENTRA [Suspect]
     Active Substance: HUMAN IMMUNOGLOBULIN G
     Indication: SELECTIVE IGG SUBCLASS DEFICIENCY
     Dosage: 8 G, QOW
     Route: 058
     Dates: start: 20160219
  4. FLOVENT [Concomitant]
     Active Substance: FLUTICASONE PROPIONATE
  5. XOPENEX [Concomitant]
     Active Substance: LEVALBUTEROL HYDROCHLORIDE

REACTIONS (7)
  - Headache [Unknown]
  - Ear infection [Unknown]
  - Pyrexia [Unknown]
  - Administration site swelling [Unknown]
  - Urinary tract infection [Unknown]
  - Sinusitis [Unknown]
  - Upper respiratory tract infection [Unknown]
